FAERS Safety Report 7561274-1 (Version None)
Quarter: 2011Q2

REPORT INFORMATION
  Report Type: 
  Country: None (occurrence: None)
  Receive Date: 20110621
  Receipt Date: 20101012
  Transmission Date: 20111010
  Serious: Yes (Other)
  Sender: FDA-Public Use
  Company Number: US-ASTRAZENECA-2010SE48377

PATIENT
  Age: 4 Year
  Sex: Female

DRUGS (3)
  1. PULMICORT [Suspect]
     Route: 055
  2. FORADIL [Suspect]
     Route: 065
  3. DULERA TABLET [Suspect]
     Dosage: 200/5 MCG 2 PUFFS, TWICE DAILY
     Route: 055
     Dates: start: 20100922, end: 20100929

REACTIONS (1)
  - AGGRESSION [None]
